FAERS Safety Report 16872011 (Version 5)
Quarter: 2020Q4

REPORT INFORMATION
  Report Type: Spontaneous
  Country: NL (occurrence: NL)
  Receive Date: 20191001
  Receipt Date: 20201111
  Transmission Date: 20210113
  Serious: Yes (Hospitalization, Other)
  Sender: FDA-Public Use
  Company Number: NL-AUROBINDO-AUR-APL-2019-063436

PATIENT
  Age: 67 Year
  Sex: Female
  Weight: 54 kg

DRUGS (25)
  1. LENALIDOMIDE [Suspect]
     Active Substance: LENALIDOMIDE
     Indication: PLASMA CELL MYELOMA
     Dosage: 25 MILLIGRAM, ONCE A DAY, MOST RECENT DOSE:12-AUG-2019
     Route: 048
     Dates: start: 20190705, end: 20190719
  2. PREGABALIN. [Concomitant]
     Active Substance: PREGABALIN
     Indication: ANXIETY
     Dosage: 150 MILLIGRAM, ONCE A DAY
     Route: 048
  3. VALACICLOVIR [Concomitant]
     Active Substance: VALACYCLOVIR HYDROCHLORIDE
     Indication: ANTIVIRAL PROPHYLAXIS
     Dosage: 1000 MILLIGRAM, ONCE A DAY
     Route: 048
     Dates: start: 20190705
  4. DEXAMETHASON TABLETS [Suspect]
     Active Substance: DEXAMETHASONE
     Dosage: 40 MILLIGRAM
     Route: 048
     Dates: start: 20190705, end: 20190716
  5. FLECAINIDE [Concomitant]
     Active Substance: FLECAINIDE
     Indication: HYPOTHYROIDISM
     Dosage: UNK
     Route: 065
  6. FLECAINIDE [Concomitant]
     Active Substance: FLECAINIDE
     Dosage: UNK
  7. FLUCONAZOLE. [Concomitant]
     Active Substance: FLUCONAZOLE
     Indication: ANTIFUNGAL PROPHYLAXIS
     Dosage: 200 MILLIGRAM, ONCE A DAY
     Route: 048
     Dates: start: 20190705
  8. ZOLPIDEM [Concomitant]
     Active Substance: ZOLPIDEM TARTRATE
     Indication: SLEEP DISORDER
     Dosage: 10 MILLIGRAM, AS NECESSARY
     Route: 048
     Dates: start: 20190621
  9. PREGABALIN. [Concomitant]
     Active Substance: PREGABALIN
     Dosage: 75 MILLIGRAM, ONCE A DAY
     Route: 048
  10. COTRIMOXAZOLE [Concomitant]
     Active Substance: SULFAMETHOXAZOLE\TRIMETHOPRIM
     Indication: INFECTION PROPHYLAXIS
     Dosage: 960 MILLIGRAM, ONCE A DAY
     Route: 048
     Dates: start: 20190705
  11. PREDNISONE. [Concomitant]
     Active Substance: PREDNISONE
     Indication: STEROID WITHDRAWAL SYNDROME
     Dosage: 20 MILLIGRAM, ONCE A DAY
     Route: 048
     Dates: start: 20190809
  12. METOPROLOL SUCCINATE. [Concomitant]
     Active Substance: METOPROLOL SUCCINATE
     Indication: HYPOTHYROIDISM
     Dosage: UNK
     Route: 065
  13. METOPROLOL SUCCINATE. [Concomitant]
     Active Substance: METOPROLOL SUCCINATE
     Indication: ATRIAL FIBRILLATION
     Dosage: 50 MILLIGRAM, ONCE A DAY
     Route: 048
     Dates: start: 20150703
  14. DEXAMETHASON TABLETS [Suspect]
     Active Substance: DEXAMETHASONE
     Indication: PLASMA CELL MYELOMA
     Dosage: 75 MILLIGRAM, ONCE A DAY
     Route: 048
  15. VELCADE [Suspect]
     Active Substance: BORTEZOMIB
     Indication: PLASMA CELL MYELOMA
     Dosage: MOST RECENT DOSE:12-AUG-2019; DOSE VARIED FROM 2.0 MG TO 2.5
     Route: 058
     Dates: start: 20190705, end: 20190712
  16. FLECAINIDE [Concomitant]
     Active Substance: FLECAINIDE
     Indication: ATRIAL FIBRILLATION
     Dosage: 100 MILLIGRAM, ONCE A DAY
     Route: 048
  17. FLECAINIDE [Concomitant]
     Active Substance: FLECAINIDE
     Dosage: 50 MILLIGRAM, ONCE A DAY
     Route: 048
  18. FOLIUMZUUR [Concomitant]
     Active Substance: FOLIC ACID
     Indication: FOLATE DEFICIENCY
     Dosage: 15 MILLIGRAM, ONCE A DAY
     Route: 048
     Dates: start: 20190802
  19. OXAZEPAM. [Concomitant]
     Active Substance: OXAZEPAM
     Indication: SLEEP DISORDER
     Dosage: 10 MILLIGRAM, AS NECESSARY
     Route: 048
  20. LEVOTHYROXINE. [Concomitant]
     Active Substance: LEVOTHYROXINE
     Indication: HYPOTHYROIDISM
     Dosage: 50 MICROGRAM, ONCE A DAY
     Route: 048
  21. PREGABALIN. [Concomitant]
     Active Substance: PREGABALIN
     Dosage: UNK
  22. COTRIMOXAZOLE [Concomitant]
     Active Substance: SULFAMETHOXAZOLE\TRIMETHOPRIM
     Dosage: 480 MILLIGRAM, ONCE A DAY
     Route: 048
     Dates: start: 20190705
  23. METOCLOPRAMIDE. [Concomitant]
     Active Substance: METOCLOPRAMIDE
     Indication: NAUSEA
     Dosage: 30 MILLIGRAM
     Route: 048
     Dates: start: 20190628
  24. RIVAROXABAN [Concomitant]
     Active Substance: RIVAROXABAN
     Indication: ANTICOAGULANT THERAPY
     Dosage: 20 MILLIGRAM, ONCE A DAY
     Route: 048
     Dates: start: 20180622
  25. RIVAROXABAN [Concomitant]
     Active Substance: RIVAROXABAN
     Dosage: UNK
     Route: 048
     Dates: start: 20190622

REACTIONS (1)
  - Syncope [Recovering/Resolving]

NARRATIVE: CASE EVENT DATE: 20190719
